FAERS Safety Report 19414614 (Version 1)
Quarter: 2021Q2

REPORT INFORMATION
  Report Type: Spontaneous
  Country: US (occurrence: US)
  Receive Date: 20210614
  Receipt Date: 20210614
  Transmission Date: 20210717
  Serious: Yes (Hospitalization)
  Sender: FDA-Public Use
  Company Number: US-BAYER-2021-153183

PATIENT
  Age: 25 Year
  Sex: Female

DRUGS (3)
  1. PARACETAMOL [Suspect]
     Active Substance: ACETAMINOPHEN
     Dosage: UNK
  2. BUPRENORPHINE. [Suspect]
     Active Substance: BUPRENORPHINE
  3. QUETIAPINE. [Suspect]
     Active Substance: QUETIAPINE

REACTIONS (5)
  - Caesarean section [None]
  - Intentional overdose [None]
  - Somnolence [None]
  - Maternal exposure during pregnancy [None]
  - Hypoxia [None]
